FAERS Safety Report 12891849 (Version 1)
Quarter: 2016Q4

REPORT INFORMATION
  Report Type: Spontaneous
  Country: US (occurrence: US)
  Receive Date: 20161028
  Receipt Date: 20161028
  Transmission Date: 20170207
  Serious: Yes (Hospitalization)
  Sender: FDA-Public Use
  Company Number: US-UCBSA-2016040737

PATIENT
  Age: 3 Month
  Sex: Female
  Weight: 4 kg

DRUGS (2)
  1. KEPPRA [Suspect]
     Active Substance: LEVETIRACETAM
     Dosage: 800 MG OF A 100 MG/ML SOLUTION EVERY 12 HOURS
     Route: 048
  2. KEPPRA [Suspect]
     Active Substance: LEVETIRACETAM
     Indication: SEIZURE
     Dosage: 80 MG, 2X/DAY (BID)
     Route: 048

REACTIONS (2)
  - Respiratory tract infection [Recovered/Resolved]
  - Prescribed overdose [Unknown]
